FAERS Safety Report 19370872 (Version 1)
Quarter: 2021Q2

REPORT INFORMATION
  Report Type: Other
  Country: JP (occurrence: JP)
  Receive Date: 20210604
  Receipt Date: 20210604
  Transmission Date: 20210717
  Serious: Yes (Other)
  Sender: FDA-Public Use
  Company Number: JP-ROCHE-2839004

PATIENT

DRUGS (7)
  1. PACLITAXEL. [Suspect]
     Active Substance: PACLITAXEL
     Dosage: ON DAY 8
     Route: 042
  2. PACLITAXEL. [Suspect]
     Active Substance: PACLITAXEL
     Dosage: ON DAY 15
     Route: 042
  3. PACLITAXEL. [Suspect]
     Active Substance: PACLITAXEL
     Dosage: ON DAY 1
     Route: 042
  4. PACLITAXEL. [Suspect]
     Active Substance: PACLITAXEL
     Indication: CERVIX CARCINOMA
     Dosage: ON DAY 1
     Route: 042
  5. CARBOPLATIN. [Suspect]
     Active Substance: CARBOPLATIN
     Indication: CERVIX CARCINOMA
     Dosage: AUC OF 5
     Route: 042
  6. BEVACIZUMAB. [Suspect]
     Active Substance: BEVACIZUMAB
     Indication: CERVIX CARCINOMA
     Dosage: ON DAY 1
     Route: 065
  7. CARBOPLATIN. [Suspect]
     Active Substance: CARBOPLATIN
     Dosage: AUC OF 5
     Route: 042

REACTIONS (18)
  - Peripheral motor neuropathy [Unknown]
  - Anaemia [Unknown]
  - Gastrointestinal perforation [Unknown]
  - Embolism [Unknown]
  - Nausea [Unknown]
  - Vaginal haemorrhage [Unknown]
  - Rectal haemorrhage [Unknown]
  - Hypertension [Unknown]
  - Febrile neutropenia [Unknown]
  - Fatigue [Unknown]
  - Fistula [Unknown]
  - Neutropenia [Unknown]
  - Vomiting [Unknown]
  - Thrombocytopenia [Unknown]
  - Decreased appetite [Unknown]
  - Infection [Unknown]
  - Proteinuria [Unknown]
  - Peripheral sensory neuropathy [Unknown]
